FAERS Safety Report 13177187 (Version 1)
Quarter: 2017Q1

REPORT INFORMATION
  Report Type: Report from Study
  Country: US (occurrence: US)
  Receive Date: 20170201
  Receipt Date: 20170201
  Transmission Date: 20170428
  Serious: Yes (Hospitalization)
  Sender: FDA-Public Use
  Company Number: US-IPSEN-CABO-16007325

PATIENT
  Sex: Female

DRUGS (17)
  1. TRAVATAN [Concomitant]
     Active Substance: TRAVOPROST
  2. LEVOTHYROXINE. [Concomitant]
     Active Substance: LEVOTHYROXINE
  3. VITAMIN C [Concomitant]
     Active Substance: ASCORBIC ACID
  4. COMETRIQ [Suspect]
     Active Substance: CABOZANTINIB S-MALATE
     Indication: IRON DEFICIENCY ANAEMIA
     Dosage: 40 MG, ALTERNATING WITH 20 MG QOD
     Route: 048
     Dates: start: 20141119
  5. METFORMIN [Concomitant]
     Active Substance: METFORMIN HYDROCHLORIDE
  6. GLUCOSAMINE/CHONDROITIN [Concomitant]
  7. COENZYME Q10 [Concomitant]
     Active Substance: UBIDECARENONE
  8. COMETRIQ [Suspect]
     Active Substance: CABOZANTINIB S-MALATE
     Indication: THYROID CANCER
     Dosage: 20 MG, QD
     Route: 048
     Dates: start: 20140321, end: 20140408
  9. POTASSIUM [Concomitant]
     Active Substance: POTASSIUM
  10. OCUVITE [Concomitant]
     Active Substance: VITAMINS
  11. ASPIRIN (E.C.) [Concomitant]
     Active Substance: ASPIRIN
  12. METOPROLOL. [Concomitant]
     Active Substance: METOPROLOL
  13. FUROSEMIDE. [Concomitant]
     Active Substance: FUROSEMIDE
  14. COMETRIQ [Suspect]
     Active Substance: CABOZANTINIB S-MALATE
     Indication: BREAST CANCER FEMALE
  15. SPIRONOLACTONE. [Concomitant]
     Active Substance: SPIRONOLACTONE
  16. DIGOXIN. [Concomitant]
     Active Substance: DIGOXIN
  17. CALCIUM [Concomitant]
     Active Substance: CALCIUM

REACTIONS (1)
  - Bronchitis [Unknown]
